FAERS Safety Report 12442840 (Version 1)
Quarter: 2016Q2

REPORT INFORMATION
  Report Type: Spontaneous
  Country: IT (occurrence: IT)
  Receive Date: 20160607
  Receipt Date: 20160607
  Transmission Date: 20160815
  Serious: Yes (Other)
  Sender: FDA-Public Use
  Company Number: IT-JNJFOC-20160600306

PATIENT
  Age: 26 Year
  Sex: Male

DRUGS (1)
  1. SPORANOX [Suspect]
     Active Substance: ITRACONAZOLE
     Indication: FUNGAL INFECTION
     Route: 048
     Dates: start: 20151209, end: 20151209

REACTIONS (6)
  - Malaise [Recovering/Resolving]
  - Palpitations [Recovering/Resolving]
  - Faeces pale [Recovering/Resolving]
  - Dyspnoea [Recovering/Resolving]
  - Confusional state [Recovering/Resolving]
  - Tongue discolouration [Recovering/Resolving]

NARRATIVE: CASE EVENT DATE: 20151209
